FAERS Safety Report 17077220 (Version 12)
Quarter: 2023Q1

REPORT INFORMATION
  Report Type: Report from Study
  Country: JP (occurrence: JP)
  Receive Date: 20191126
  Receipt Date: 20230124
  Transmission Date: 20230418
  Serious: Yes (Death, Hospitalization, Other)
  Sender: FDA-Public Use
  Company Number: JP-ONO-2019JP010270

PATIENT
  Age: 71 Year
  Sex: Female
  Weight: 40.5 kg

DRUGS (20)
  1. ETELCALCETIDE [Suspect]
     Active Substance: ETELCALCETIDE
     Indication: Hyperparathyroidism secondary
     Dosage: 5 MG, Q56H
     Route: 010
     Dates: start: 20181102, end: 20190329
  2. ETELCALCETIDE [Suspect]
     Active Substance: ETELCALCETIDE
     Dosage: 10 MG, Q56H
     Route: 010
     Dates: start: 20190401, end: 20190731
  3. ETELCALCETIDE [Suspect]
     Active Substance: ETELCALCETIDE
     Dosage: 15 MG, Q56H
     Route: 010
     Dates: start: 20190802, end: 20200320
  4. MAXACALCITOL [Concomitant]
     Active Substance: MAXACALCITOL
     Dosage: 5 MICROGRAM, Q84H
     Route: 010
  5. MAXACALCITOL [Concomitant]
     Active Substance: MAXACALCITOL
     Dosage: 5 MICROGRAM, Q56H
     Route: 010
     Dates: start: 20180604, end: 20190531
  6. MAXACALCITOL [Concomitant]
     Active Substance: MAXACALCITOL
     Dosage: 2.5 MICROGRAM, Q56H
     Route: 010
     Dates: start: 20190603, end: 20190830
  7. MAXACALCITOL [Concomitant]
     Active Substance: MAXACALCITOL
     Dosage: 5 MICROGRAM, Q56H
     Route: 010
     Dates: start: 20190902, end: 20200330
  8. MAXACALCITOL [Concomitant]
     Active Substance: MAXACALCITOL
     Dosage: 2.5 MICROGRAM, Q56H
     Route: 010
     Dates: start: 20200401, end: 20200429
  9. MAXACALCITOL [Concomitant]
     Active Substance: MAXACALCITOL
     Dosage: 5 MICROGRAM, Q56H
     Route: 010
     Dates: start: 20200501
  10. RENAGEL [SEVELAMER CARBONATE] [Concomitant]
     Dosage: 1500 MILLIGRAM, QD
     Route: 065
     Dates: end: 20181125
  11. FOSRENOL [Concomitant]
     Active Substance: LANTHANUM CARBONATE
     Dosage: 1500 MG, EVERYDAY
     Route: 065
     Dates: end: 20190127
  12. FOSRENOL [Concomitant]
     Active Substance: LANTHANUM CARBONATE
     Dosage: 2250 MG, EVERYDAY
     Route: 065
     Dates: start: 20190128, end: 20200621
  13. FERROUS SULFATE [Concomitant]
     Active Substance: FERROUS SULFATE
     Dosage: 315 MG, QW
     Route: 065
     Dates: start: 20181224
  14. ERYTHROPOIETIN [Concomitant]
     Active Substance: ERYTHROPOIETIN
     Dosage: 6000 IU, QW
     Route: 065
     Dates: start: 20181029, end: 20200228
  15. ERYTHROPOIETIN [Concomitant]
     Active Substance: ERYTHROPOIETIN
     Dosage: 3000 IU, QW
     Route: 065
     Dates: start: 20200302
  16. ERYTHROPOIETIN [Concomitant]
     Active Substance: ERYTHROPOIETIN
     Dosage: 1500 IU, QW
     Route: 065
     Dates: start: 20200302
  17. EVOCALCET [Concomitant]
     Active Substance: EVOCALCET
     Dosage: 2 MG, EVERYDAY
     Route: 048
     Dates: start: 20200323, end: 20200507
  18. EVOCALCET [Concomitant]
     Active Substance: EVOCALCET
     Dosage: 3 MG, EVERYDAY
     Route: 048
     Dates: start: 20200508, end: 20200726
  19. EVOCALCET [Concomitant]
     Active Substance: EVOCALCET
     Dosage: 4 MG, EVERYDAY
     Route: 048
     Dates: start: 20200727
  20. LANTHANUM CARBONATE [Concomitant]
     Active Substance: LANTHANUM CARBONATE
     Dosage: 2250 MG, QW
     Route: 048
     Dates: start: 20200622

REACTIONS (7)
  - Cardiac failure [Fatal]
  - Transient global amnesia [Recovering/Resolving]
  - Cardiac failure [Recovered/Resolved]
  - Upper respiratory tract inflammation [Recovered/Resolved]
  - Conjunctivitis allergic [Recovering/Resolving]
  - Dermatitis [Recovered/Resolved]
  - Pruritus [Recovered/Resolved]

NARRATIVE: CASE EVENT DATE: 20190130
